FAERS Safety Report 6719531-4 (Version None)
Quarter: 2010Q2

REPORT INFORMATION
  Report Type: 
  Country: None (occurrence: None)
  Receive Date: 20100510
  Receipt Date: 20100510
  Transmission Date: 20101027
  Serious: Yes (Other)
  Sender: FDA-Public Use
  Company Number: None

PATIENT
  Age: 68 Year
  Sex: Female
  Weight: 53.0709 kg

DRUGS (2)
  1. TRAMADOL HCL [Suspect]
     Indication: OOPHORECTOMY
     Dosage: 1-2 TABLETS EVERY 3-4 HRS PO
     Route: 048
     Dates: start: 20100503, end: 20100504
  2. TRAMADOL HCL [Suspect]
     Indication: PROCEDURAL PAIN
     Dosage: 1-2 TABLETS EVERY 3-4 HRS PO
     Route: 048
     Dates: start: 20100503, end: 20100504

REACTIONS (11)
  - COUGH [None]
  - DECREASED APPETITE [None]
  - DRY MOUTH [None]
  - DYSURIA [None]
  - EYE SWELLING [None]
  - JOINT SWELLING [None]
  - LIP SWELLING [None]
  - OEDEMA PERIPHERAL [None]
  - STOMATITIS [None]
  - SWELLING FACE [None]
  - WEIGHT INCREASED [None]
